FAERS Safety Report 5136791-4 (Version None)
Quarter: 2006Q4

REPORT INFORMATION
  Report Type: 
  Country: None (occurrence: None)
  Receive Date: 20061013
  Receipt Date: 20060929
  Transmission Date: 20070319
  Serious: No
  Sender: FDA-Public Use
  Company Number: WSDF_00581

PATIENT
  Age: 48 Year
  Sex: Female

DRUGS (1)
  1. WINRHO SDF [Suspect]
     Dosage: 75 UG/KG ONCE
     Dates: start: 20060928, end: 20060928

REACTIONS (3)
  - ASPARTATE AMINOTRANSFERASE INCREASED [None]
  - BLOOD BILIRUBIN ABNORMAL [None]
  - CHROMATURIA [None]
